FAERS Safety Report 15334281 (Version 1)
Quarter: 2018Q3

REPORT INFORMATION
  Report Type: Spontaneous
  Country: US (occurrence: US)
  Receive Date: 20180830
  Receipt Date: 20180830
  Transmission Date: 20181010
  Serious: No
  Sender: FDA-Public Use
  Company Number: US-PFIZER INC-2018343701

PATIENT
  Age: 58 Year
  Sex: Female

DRUGS (1)
  1. ALPRAZOLAM. [Suspect]
     Active Substance: ALPRAZOLAM
     Indication: PANIC ATTACK
     Dosage: 1 MG, AS NEEDED (TAKES HALF A PILL UNDER TONGUE BEFORE DRIVING AND WHEN GETS HOME TAKES THE OTHER)
     Route: 060

REACTIONS (3)
  - Nausea [Unknown]
  - Dizziness [Unknown]
  - Intentional product misuse [Unknown]
